FAERS Safety Report 11472382 (Version 1)
Quarter: 2015Q3

REPORT INFORMATION
  Report Type: Spontaneous
  Country: US (occurrence: US)
  Receive Date: 20150908
  Receipt Date: 20150908
  Transmission Date: 20151125
  Serious: No
  Sender: FDA-Public Use
  Company Number: US-SA-2015SA115055

PATIENT
  Age: 65 Year
  Sex: Male

DRUGS (2)
  1. TOUJEO [Suspect]
     Active Substance: INSULIN GLARGINE
     Route: 065
     Dates: start: 20150724, end: 20150727
  2. SOLOSTAR [Concomitant]
     Active Substance: DEVICE
     Dates: start: 20150704, end: 20150727

REACTIONS (1)
  - Injection site reaction [Recovering/Resolving]

NARRATIVE: CASE EVENT DATE: 20150727
